FAERS Safety Report 13118912 (Version 2)
Quarter: 2017Q1

REPORT INFORMATION
  Report Type: Spontaneous
  Country: US (occurrence: US)
  Receive Date: 20170116
  Receipt Date: 20170223
  Transmission Date: 20170428
  Serious: Yes (Other)
  Sender: FDA-Public Use
  Company Number: US-009507513-1701USA005483

PATIENT
  Sex: Female

DRUGS (1)
  1. JANUVIA [Suspect]
     Active Substance: SITAGLIPTIN PHOSPHATE
     Indication: DIABETES MELLITUS
     Dosage: UNK
     Route: 048

REACTIONS (4)
  - Maternal exposure during pregnancy [Unknown]
  - Pancreatitis [Recovered/Resolved]
  - Gastrointestinal disorder [Recovered/Resolved]
  - Blood glucose increased [Recovered/Resolved]
